FAERS Safety Report 26050524 (Version 3)
Quarter: 2025Q4

REPORT INFORMATION
  Report Type: Report from Study
  Country: US (occurrence: US)
  Receive Date: 20251116
  Receipt Date: 20251224
  Transmission Date: 20260118
  Serious: No
  Sender: LUNDBECK
  Company Number: US-LUNDBECK-DKLU4021162

PATIENT
  Age: 6 Month
  Sex: Female
  Weight: 5.5021 kg

DRUGS (1)
  1. VYEPTI [Suspect]
     Active Substance: EPTINEZUMAB-JJMR
     Indication: Foetal exposure during pregnancy
     Route: 015

REACTIONS (3)
  - Food allergy [Recovered/Resolved]
  - Food allergy [Recovered/Resolved]
  - Eczema [Recovering/Resolving]

NARRATIVE: CASE EVENT DATE: 20250927
